FAERS Safety Report 16533530 (Version 1)
Quarter: 2019Q3

REPORT INFORMATION
  Report Type: Report from Study
  Country: CN (occurrence: CN)
  Receive Date: 20190704
  Receipt Date: 20190704
  Transmission Date: 20191004
  Serious: Yes (Hospitalization)
  Sender: FDA-Public Use
  Company Number: CN-VIFOR (INTERNATIONAL) INC.-VIT-2019-06467

PATIENT
  Age: 55 Year
  Sex: Female
  Weight: 62 kg

DRUGS (13)
  1. RENVELA [Suspect]
     Active Substance: SEVELAMER CARBONATE
     Indication: HYPERPHOSPHATAEMIA
     Route: 048
     Dates: start: 20190531
  2. ALFACALCIDOL [Concomitant]
     Active Substance: ALFACALCIDOL
     Indication: HYPERPARATHYROIDISM SECONDARY
     Route: 048
     Dates: start: 20190419
  3. AMLODIPINE BESYLATE. [Concomitant]
     Active Substance: AMLODIPINE BESYLATE
     Indication: HYPERTENSION
     Route: 048
     Dates: start: 20190410
  4. SODIUM RABEPRAZOLE [Concomitant]
     Active Substance: RABEPRAZOLE SODIUM
     Indication: GASTRITIS
     Route: 048
     Dates: start: 20190517, end: 20190519
  5. SALMON CALCITONIN [Concomitant]
     Indication: HYPERCALCAEMIA
     Route: 030
     Dates: start: 20190607
  6. CLONAZEPAM. [Concomitant]
     Active Substance: CLONAZEPAM
     Indication: SLEEP DISORDER
     Route: 048
     Dates: start: 20190513
  7. LOW MOLECULAR WEIGHT HEPARIN SODIUM [Concomitant]
     Active Substance: HEPARIN SODIUM
     Indication: THROMBOSIS PROPHYLAXIS
     Route: 042
     Dates: start: 20190513
  8. HIRUDOID [Concomitant]
     Active Substance: GLYCOSAMINOGLYCANS
     Route: 061
     Dates: start: 20190529
  9. MONTMORILLONITE [Concomitant]
     Active Substance: MONTMORILLONITE
     Indication: DIARRHOEA
     Route: 048
     Dates: start: 20190517, end: 20190519
  10. BERBERINE HYDROCHLORIDE [Concomitant]
     Active Substance: BERBERINE
     Indication: LARGE INTESTINE INFECTION
     Route: 048
     Dates: start: 20190517, end: 20190519
  11. RECOMBINANT HUMAN ERYTHROPOIETIN INJECTION [Concomitant]
     Active Substance: ERYTHROPOIETIN
     Indication: NEPHROGENIC ANAEMIA
     Route: 042
     Dates: start: 20190513
  12. RENVELA [Suspect]
     Active Substance: SEVELAMER CARBONATE
     Route: 048
     Dates: start: 20190627
  13. FLUPENTIXOL AND MELITRACEN [Concomitant]
     Indication: SLEEP DISORDER
     Route: 048
     Dates: start: 20190506

REACTIONS (1)
  - Appendicitis [Not Recovered/Not Resolved]

NARRATIVE: CASE EVENT DATE: 20190622
